FAERS Safety Report 12099972 (Version 2)
Quarter: 2016Q2

REPORT INFORMATION
  Report Type: Spontaneous
  Country: IN (occurrence: IN)
  Receive Date: 20160222
  Receipt Date: 20160427
  Transmission Date: 20160815
  Serious: Yes (Other)
  Sender: FDA-Public Use
  Company Number: IN-PFIZER INC-2016099646

PATIENT

DRUGS (1)
  1. DEPO-MEDROL [Suspect]
     Active Substance: METHYLPREDNISOLONE ACETATE
     Dosage: 2 ML, UNK

REACTIONS (4)
  - Pruritus [Unknown]
  - Syncope [Unknown]
  - Rash [Unknown]
  - Hypersensitivity [Unknown]
